FAERS Safety Report 5142240-2 (Version None)
Quarter: 2006Q4

REPORT INFORMATION
  Report Type: 
  Country: None (occurrence: None)
  Receive Date: 20061102
  Receipt Date: 20041028
  Transmission Date: 20070319
  Serious: Yes (Hospitalization, Disabling)
  Sender: FDA-Public Use
  Company Number: US-ROCHE-384943

PATIENT
  Age: 21 Year
  Sex: Male
  Weight: 66.7 kg

DRUGS (1)
  1. ACCUTANE [Suspect]
     Indication: ACNE
     Route: 048
     Dates: start: 19981130, end: 19990415

REACTIONS (57)
  - ABDOMINAL PAIN [None]
  - ANAEMIA [None]
  - ANISOCYTOSIS [None]
  - APPENDICITIS [None]
  - ASTHENIA [None]
  - BLOOD BILIRUBIN INCREASED [None]
  - CARCINOEMBRYONIC ANTIGEN INCREASED [None]
  - CHEST DISCOMFORT [None]
  - COLITIS [None]
  - COLITIS ULCERATIVE [None]
  - COLONIC POLYP [None]
  - CONSTIPATION [None]
  - COUGH [None]
  - CROHN'S DISEASE [None]
  - DIZZINESS [None]
  - DRY SKIN [None]
  - DUODENITIS [None]
  - DYSPEPSIA [None]
  - DYSPNOEA [None]
  - EMOTIONAL DISTRESS [None]
  - EXPOSURE TO ALLERGEN [None]
  - FATIGUE [None]
  - GASTRIC DISORDER [None]
  - GASTRITIS [None]
  - GASTROINTESTINAL DISORDER [None]
  - GASTROINTESTINAL HAEMORRHAGE [None]
  - GASTROINTESTINAL INJURY [None]
  - GASTROOESOPHAGEAL REFLUX DISEASE [None]
  - HAEMATOCHEZIA [None]
  - HEADACHE [None]
  - HEPATIC ENZYME INCREASED [None]
  - HYPERBILIRUBINAEMIA [None]
  - INFLAMMATORY BOWEL DISEASE [None]
  - INGUINAL HERNIA [None]
  - INTESTINAL HAEMORRHAGE [None]
  - IRON DEFICIENCY [None]
  - IRON DEFICIENCY ANAEMIA [None]
  - JOINT INJURY [None]
  - LYMPHADENOPATHY [None]
  - METAPLASIA [None]
  - MICROCYTIC ANAEMIA [None]
  - MULTI-ORGAN DISORDER [None]
  - NAUSEA [None]
  - OESOPHAGEAL DISORDER [None]
  - PLATELET COUNT INCREASED [None]
  - POIKILOCYTOSIS [None]
  - POUCHITIS [None]
  - RECTAL HAEMORRHAGE [None]
  - RHINORRHOEA [None]
  - SERUM FERRITIN DECREASED [None]
  - SINUS DISORDER [None]
  - SMALL INTESTINE ULCER [None]
  - SNEEZING [None]
  - SOMNOLENCE [None]
  - VOMITING [None]
  - WEIGHT DECREASED [None]
  - WHEEZING [None]
